FAERS Safety Report 4911480-7 (Version None)
Quarter: 2006Q1

REPORT INFORMATION
  Report Type: 
  Country: None (occurrence: None)
  Receive Date: 20060214
  Receipt Date: 20050315
  Transmission Date: 20060701
  Serious: Yes (Hospitalization, Disabling, Other)
  Sender: FDA-Public Use
  Company Number: US-MERCK-0503USA03223

PATIENT
  Age: 57 Year
  Sex: Female
  Weight: 118 kg

DRUGS (7)
  1. VIOXX [Suspect]
     Indication: ARTHRITIS
     Route: 048
     Dates: start: 20031201, end: 20040801
  2. VIOXX [Suspect]
     Route: 048
  3. LEVOXYL [Concomitant]
     Route: 065
  4. SYNTHROID [Concomitant]
     Route: 065
  5. MOTRIN [Concomitant]
     Route: 065
  6. LASIX [Concomitant]
     Route: 065
  7. ORTHO-NOVUM [Concomitant]
     Route: 065

REACTIONS (12)
  - CARDIAC DISORDER [None]
  - CARDIAC FAILURE [None]
  - CEREBROVASCULAR ACCIDENT [None]
  - CHEST PAIN [None]
  - DYSPHAGIA [None]
  - EYE DISORDER [None]
  - HEPATOCELLULAR DAMAGE [None]
  - INJURY [None]
  - MYOCARDIAL INFARCTION [None]
  - RENAL DISORDER [None]
  - THROMBOSIS [None]
  - ULCER [None]
